FAERS Safety Report 7344912-8 (Version None)
Quarter: 2011Q1

REPORT INFORMATION
  Report Type: 
  Country: None (occurrence: None)
  Receive Date: 20110228
  Receipt Date: 20110211
  Transmission Date: 20110831
  Serious: Yes (Hospitalization)
  Sender: FDA-Public Use
  Company Number: 011702

PATIENT
  Age: 15 Year
  Sex: Male
  Weight: 75.5 kg

DRUGS (3)
  1. LEVETIRACETAM [Suspect]
     Indication: PARTIAL SEIZURES
     Dosage: (3000 MG)
     Dates: start: 20050101
  2. CARBAMAZEPINE [Concomitant]
  3. LAMOTRIGINE [Concomitant]

REACTIONS (3)
  - FATIGUE [None]
  - HEADACHE [None]
  - BLINDNESS TRANSIENT [None]
